FAERS Safety Report 7163697-1 (Version None)
Quarter: 2010Q4

REPORT INFORMATION
  Report Type: 
  Country: None (occurrence: None)
  Receive Date: 20101215
  Receipt Date: 20100528
  Transmission Date: 20110411
  Serious: Yes (Other)
  Sender: FDA-Public Use
  Company Number: US-PFIZER INC-2010068186

PATIENT
  Sex: Male
  Weight: 65.76 kg

DRUGS (6)
  1. LYRICA [Suspect]
     Indication: PAIN
     Dosage: 75 MG, 1X/DAY AFTER SUPPER
     Route: 048
     Dates: start: 20100508, end: 20100526
  2. LYRICA [Suspect]
     Dosage: 75 MG AT SUPPER, 150 MG AT BEDTIME
     Route: 048
     Dates: start: 20100527
  3. CITALOPRAM [Concomitant]
     Indication: DEPRESSION
     Dosage: UNK
  4. PREDNISOLONE [Concomitant]
     Dosage: 10 MG, DAILY
  5. LORTAB [Concomitant]
     Dosage: 10 / 325 MG, UNK
  6. TERAZOSIN [Concomitant]
     Dosage: UNK

REACTIONS (2)
  - EYE SWELLING [None]
  - VISION BLURRED [None]
